FAERS Safety Report 12933731 (Version 1)
Quarter: 2016Q4

REPORT INFORMATION
  Report Type: Spontaneous
  Country: DE (occurrence: DE)
  Receive Date: 20161111
  Receipt Date: 20161111
  Transmission Date: 20170207
  Serious: Yes (Hospitalization)
  Sender: FDA-Public Use
  Company Number: DE-SA-2016SA190729

PATIENT
  Age: 55 Year
  Sex: Female
  Weight: 56 kg

DRUGS (7)
  1. L-THYROXIN [Concomitant]
     Active Substance: LEVOTHYROXINE SODIUM
     Indication: HYPOTHYROIDISM
     Route: 048
     Dates: start: 20160502
  2. MIRTAZAPINE. [Concomitant]
     Active Substance: MIRTAZAPINE
     Dosage: IN THE EVENING
     Dates: start: 20160502
  3. AUBAGIO [Suspect]
     Active Substance: TERIFLUNOMIDE
     Indication: RELAPSING-REMITTING MULTIPLE SCLEROSIS
     Route: 048
     Dates: start: 201604, end: 201610
  4. MUCOFALK [Concomitant]
     Dates: start: 20160502
  5. AUBAGIO [Suspect]
     Active Substance: TERIFLUNOMIDE
     Indication: RELAPSING-REMITTING MULTIPLE SCLEROSIS
     Route: 048
     Dates: start: 201610
  6. GABAPENTIN. [Concomitant]
     Active Substance: GABAPENTIN
     Dates: start: 20160502, end: 201610
  7. SELENIUM [Concomitant]
     Active Substance: SELENIUM
     Dates: start: 20160502

REACTIONS (6)
  - Lhermitte^s sign [Unknown]
  - Limb discomfort [Unknown]
  - Paraesthesia [Unknown]
  - Leukopenia [Unknown]
  - Band sensation [Unknown]
  - Off label use [Unknown]

NARRATIVE: CASE EVENT DATE: 2016
